FAERS Safety Report 5189419-1 (Version None)
Quarter: 2006Q4

REPORT INFORMATION
  Report Type: 
  Country: None (occurrence: None)
  Receive Date: 20061221
  Receipt Date: 20061206
  Transmission Date: 20070319
  Serious: Yes (Other)
  Sender: FDA-Public Use
  Company Number: JP-MERCK-0612USA01343

PATIENT
  Age: 50 Year
  Sex: Female

DRUGS (4)
  1. PEPCID [Suspect]
     Indication: GASTRIC ULCER
     Route: 048
     Dates: start: 20060210, end: 20060301
  2. FOSAMAX [Concomitant]
     Indication: OSTEOPOROSIS
     Route: 048
     Dates: start: 20060210
  3. SOLU-MEDROL [Concomitant]
     Indication: STEROID THERAPY
     Route: 065
     Dates: start: 20060210
  4. REBAMIPIDE [Concomitant]
     Indication: PROPHYLAXIS AGAINST GASTROINTESTINAL ULCER
     Route: 048

REACTIONS (8)
  - GLAUCOMATOUS OPTIC DISC ATROPHY [None]
  - HEMIANOPIA [None]
  - HEPATIC FUNCTION ABNORMAL [None]
  - HEPATOCELLULAR DAMAGE [None]
  - LIVER DISORDER [None]
  - PAPILLOEDEMA [None]
  - SCOTOMA [None]
  - THERAPY NON-RESPONDER [None]
